FAERS Safety Report 23557464 (Version 1)
Quarter: 2024Q1

REPORT INFORMATION
  Report Type: Spontaneous
  Country: US (occurrence: US)
  Receive Date: 20240223
  Receipt Date: 20240223
  Transmission Date: 20240410
  Serious: No
  Sender: FDA-Public Use
  Company Number: US-BIOCON BIOLOGICS LIMITED-2023M1122784

PATIENT
  Sex: Male
  Weight: 113 kg

DRUGS (4)
  1. SEMGLEE (INSULIN GLARGINE-YFGN) [Suspect]
     Active Substance: INSULIN GLARGINE-YFGN
     Indication: Type 2 diabetes mellitus
     Dosage: 70 INTERNATIONAL UNIT, QD
     Route: 058
     Dates: start: 202301
  2. SEMGLEE (INSULIN GLARGINE-YFGN) [Suspect]
     Active Substance: INSULIN GLARGINE-YFGN
     Dosage: 70 INTERNATIONAL UNIT, QD
     Route: 058
     Dates: start: 202301
  3. DEVICE [Suspect]
     Active Substance: DEVICE
     Indication: Type 2 diabetes mellitus
  4. HUMALOG [Concomitant]
     Active Substance: INSULIN LISPRO
     Dosage: UNK
     Route: 065

REACTIONS (2)
  - Device defective [Unknown]
  - Product quality issue [Unknown]
